FAERS Safety Report 26120000 (Version 1)
Quarter: 2025Q4

REPORT INFORMATION
  Report Type: Spontaneous
  Country: GB (occurrence: GB)
  Receive Date: 20251204
  Receipt Date: 20251204
  Transmission Date: 20260118
  Serious: Yes (Other)
  Sender: RANBAXY
  Company Number: GB-SUN PHARMACEUTICAL INDUSTRIES LTD-2025RR-539107

PATIENT
  Sex: Female
  Weight: 1.6 kg

DRUGS (3)
  1. MORPHINE [Suspect]
     Active Substance: MORPHINE
     Indication: Blood pressure systolic increased
     Dosage: UNK
     Route: 040
  2. LABETALOL [Suspect]
     Active Substance: LABETALOL
     Indication: Blood pressure systolic increased
     Dosage: UNK
     Route: 040
  3. HYDRALAZINE [Suspect]
     Active Substance: HYDRALAZINE HYDROCHLORIDE
     Indication: Blood pressure systolic increased
     Dosage: UNK
     Route: 040

REACTIONS (1)
  - Respiratory rate decreased [Recovered/Resolved]
